FAERS Safety Report 5020278-3 (Version None)
Quarter: 2006Q2

REPORT INFORMATION
  Report Type: 
  Country: None (occurrence: None)
  Receive Date: 20060601
  Receipt Date: 20060519
  Transmission Date: 20061013
  Serious: Yes (Other)
  Sender: FDA-Public Use
  Company Number: 805#9#2006-00078

PATIENT
  Age: 1 Month
  Sex: Male

DRUGS (2)
  1. ALPROSTADIL [Suspect]
     Indication: HEART DISEASE CONGENITAL
     Dosage: 1.50 NG/KG/MIN INTRAVENOUS DRIP
     Route: 041
     Dates: start: 20050517, end: 20050520
  2. FUROSEMIDE [Concomitant]

REACTIONS (1)
  - INFANTILE APNOEIC ATTACK [None]
